FAERS Safety Report 23156936 (Version 1)
Quarter: 2023Q4

REPORT INFORMATION
  Report Type: Spontaneous
  Country: US (occurrence: None)
  Receive Date: 20231108
  Receipt Date: 20231108
  Transmission Date: 20240110
  Serious: Yes (Hospitalization)
  Sender: FDA-Public Use
  Company Number: US-ROCHE-3453507

PATIENT
  Sex: Female

DRUGS (5)
  1. ACTEMRA [Suspect]
     Active Substance: TOCILIZUMAB
     Indication: Systemic lupus erythematosus
     Dosage: 162MG/0.9M
     Route: 058
     Dates: start: 202309
  2. ACTEMRA [Suspect]
     Active Substance: TOCILIZUMAB
  3. TADALAFIL [Concomitant]
     Active Substance: TADALAFIL
  4. OPSUMIT [Concomitant]
     Active Substance: MACITENTAN
  5. REMODULIN [Concomitant]
     Active Substance: TREPROSTINIL

REACTIONS (2)
  - Hypokalaemia [Unknown]
  - Off label use [Unknown]
